FAERS Safety Report 7865831-4 (Version None)
Quarter: 2011Q4

REPORT INFORMATION
  Report Type: 
  Country: None (occurrence: None)
  Receive Date: 20111028
  Receipt Date: 20110304
  Transmission Date: 20120403
  Serious: No
  Sender: FDA-Public Use
  Company Number: US-GLAXOSMITHKLINE-A0916782A

PATIENT
  Age: 61 Year
  Sex: Male

DRUGS (2)
  1. ADVAIR DISKUS 100/50 [Suspect]
     Indication: SINUS DISORDER
     Dosage: 1PUFF TWICE PER DAY
     Route: 055
     Dates: start: 20110224, end: 20110226
  2. ALLOPURINOL [Concomitant]

REACTIONS (2)
  - URTICARIA [None]
  - PRURITUS GENERALISED [None]
